FAERS Safety Report 6645652-0 (Version None)
Quarter: 2010Q1

REPORT INFORMATION
  Report Type: 
  Country: None (occurrence: None)
  Receive Date: 20100323
  Receipt Date: 20100316
  Transmission Date: 20100710
  Serious: Yes (Hospitalization, Other)
  Sender: FDA-Public Use
  Company Number: BR-ABBOTT-10P-020-0629810-00

PATIENT
  Age: 16 Year
  Sex: Female
  Weight: 74 kg

DRUGS (3)
  1. DEPAKOTE [Suspect]
     Indication: BIPOLAR DISORDER
     Dosage: 100 TABLETS
     Route: 048
     Dates: start: 20090901, end: 20090901
  2. LORAZEPAM [Concomitant]
     Indication: INSOMNIA
  3. FLUOXETINE [Concomitant]
     Indication: ANTIDEPRESSANT THERAPY

REACTIONS (3)
  - COMA [None]
  - INCORRECT DOSE ADMINISTERED [None]
  - LOSS OF CONSCIOUSNESS [None]
